FAERS Safety Report 10029805 (Version 2)
Quarter: 2014Q2

REPORT INFORMATION
  Report Type: Spontaneous
  Country: US (occurrence: None)
  Receive Date: 20140318
  Receipt Date: 20140318
  Transmission Date: 20141212
  Serious: Yes (Death)
  Sender: FDA-Public Use
  Company Number: 2014-US-002924

PATIENT
  Age: 57 Year
  Sex: Male

DRUGS (1)
  1. FAZACLO ODT (CLOZAPINE) TABLET, 100MG [Suspect]
     Route: 048
     Dates: start: 20050617

REACTIONS (2)
  - Pneumonia [None]
  - Chronic obstructive pulmonary disease [None]
